FAERS Safety Report 21269492 (Version 1)
Quarter: 2022Q3

REPORT INFORMATION
  Report Type: Spontaneous
  Country: US (occurrence: US)
  Receive Date: 20220830
  Receipt Date: 20220830
  Transmission Date: 20221027
  Serious: No
  Sender: FDA-Public Use
  Company Number: US-009507513-2208USA002156

PATIENT
  Age: 69 Year
  Sex: Male

DRUGS (1)
  1. VERQUVO [Suspect]
     Active Substance: VERICIGUAT
     Dosage: 2.5 MG/DAILY WITH FOOD
     Route: 048

REACTIONS (3)
  - Product dose omission issue [Unknown]
  - Inability to afford medication [Unknown]
  - No adverse event [Unknown]

NARRATIVE: CASE EVENT DATE: 20220726
